FAERS Safety Report 10147039 (Version 1)
Quarter: 2014Q2

REPORT INFORMATION
  Report Type: Spontaneous
  Country: US (occurrence: US)
  Receive Date: 20140501
  Receipt Date: 20140501
  Transmission Date: 20141212
  Serious: Yes (Hospitalization, Other)
  Sender: FDA-Public Use
  Company Number: US-PFIZER INC-2014116050

PATIENT
  Age: 60 Year
  Sex: Male

DRUGS (9)
  1. SUTENT [Suspect]
     Indication: RENAL CANCER
     Dosage: 37.5 MG, CYCLIC (QDX14DYS OFF X1 WK)
     Route: 048
     Dates: start: 20130430, end: 201404
  2. COQ 10 [Concomitant]
     Dosage: UNK
  3. SELENIUM [Concomitant]
     Dosage: UNK
  4. HEMP OIL [Concomitant]
  5. VIT D [Concomitant]
     Dosage: UNK
  6. VIT C [Concomitant]
     Dosage: UNK
  7. B-12 [Concomitant]
     Dosage: UNK
  8. NORCO [Concomitant]
     Dosage: UNK
  9. VALIUM [Concomitant]
     Dosage: UNK

REACTIONS (1)
  - Intestinal perforation [Unknown]
